FAERS Safety Report 9249399 (Version 2)
Quarter: 2013Q3

REPORT INFORMATION
  Report Type: Report from Study
  Country: US (occurrence: US)
  Receive Date: 20130423
  Receipt Date: 20130723
  Transmission Date: 20140515
  Serious: Yes (Other)
  Sender: FDA-Public Use
  Company Number: US-ELI_LILLY_AND_COMPANY-US201207002415

PATIENT
  Age: 80 Year
  Sex: Female

DRUGS (5)
  1. TERIPARATIDE [Suspect]
     Indication: OSTEOPOROSIS
     Dosage: 20 UG, QD
     Dates: start: 20120511, end: 201208
  2. TERIPARATIDE [Suspect]
     Dosage: 20 UG, QD
     Dates: start: 201209
  3. TERIPARATIDE [Suspect]
     Dosage: 20 UG, QD
     Dates: end: 201212
  4. TERIPARATIDE [Suspect]
     Dosage: 20 UG, QD
  5. TERIPARATIDE [Suspect]
     Dosage: 20 UG, QD
     Dates: end: 20130128

REACTIONS (17)
  - Plasma cell myeloma [Unknown]
  - Renal disorder [Unknown]
  - Renal failure [Unknown]
  - Stress fracture [Unknown]
  - Cystitis [Unknown]
  - Back pain [Recovered/Resolved]
  - Spinal deformity [Unknown]
  - Abdominal discomfort [Unknown]
  - Malaise [Unknown]
  - Body height decreased [Unknown]
  - Decreased appetite [Recovering/Resolving]
  - Emotional disorder [Unknown]
  - Weight decreased [Unknown]
  - Fatigue [Unknown]
  - Vomiting [Unknown]
  - Muscle spasms [Recovered/Resolved]
  - Nausea [Unknown]
